FAERS Safety Report 8243794-X (Version None)
Quarter: 2012Q1

REPORT INFORMATION
  Report Type: 
  Country: None (occurrence: None)
  Receive Date: 20120329
  Receipt Date: 20111115
  Transmission Date: 20120608
  Serious: No
  Sender: FDA-Public Use
  Company Number: US-MYLANLABS-2011S1023842

PATIENT
  Sex: Female

DRUGS (1)
  1. EMSAM [Suspect]
     Indication: DEPRESSION
     Dates: start: 20111001

REACTIONS (9)
  - INSOMNIA [None]
  - PAIN [None]
  - ANXIETY [None]
  - DEPRESSION [None]
  - DRUG INEFFECTIVE [None]
  - CHANGE IN SUSTAINED ATTENTION [None]
  - CHILLS [None]
  - IRRITABILITY [None]
  - WEIGHT INCREASED [None]
